FAERS Safety Report 22848420 (Version 2)
Quarter: 2023Q4

REPORT INFORMATION
  Report Type: Spontaneous
  Country: US (occurrence: US)
  Receive Date: 20230822
  Receipt Date: 20231020
  Transmission Date: 20240110
  Serious: No
  Sender: FDA-Public Use
  Company Number: US-RISINGPHARMA-US-2023RISSPO00131

PATIENT

DRUGS (2)
  1. HYDROCORTISONE [Suspect]
     Active Substance: HYDROCORTISONE
     Indication: Product used for unknown indication
     Route: 065
  2. CIBINQO [Suspect]
     Active Substance: ABROCITINIB
     Indication: Product used for unknown indication
     Route: 065

REACTIONS (2)
  - Dermatitis atopic [Unknown]
  - Constipation [None]
